FAERS Safety Report 16480284 (Version 7)
Quarter: 2019Q3

REPORT INFORMATION
  Report Type: Report from Study
  Country: FR (occurrence: FR)
  Receive Date: 20190626
  Receipt Date: 20190924
  Transmission Date: 20191004
  Serious: Yes (Death, Hospitalization)
  Sender: FDA-Public Use
  Company Number: FR-EXELIXIS-XL18419020101

PATIENT
  Age: 47 Year
  Sex: Female
  Weight: 51 kg

DRUGS (3)
  1. CABOZANTINIB [Suspect]
     Active Substance: CABOZANTINIB
     Dosage: 40 MG,DAILY
     Route: 048
     Dates: start: 20190401, end: 20190627
  2. CABOZANTINIB [Suspect]
     Active Substance: CABOZANTINIB
     Dosage: 20 MG,DAILY
     Route: 048
     Dates: start: 20190705
  3. CABOZANTINIB [Suspect]
     Active Substance: CABOZANTINIB
     Indication: RENAL CELL CARCINOMA
     Dosage: 60 MG,DAILY
     Route: 048
     Dates: start: 20190226, end: 20190313

REACTIONS (41)
  - Ejection fraction decreased [Recovering/Resolving]
  - Asthenia [Recovered/Resolved]
  - Asthenia [Recovering/Resolving]
  - Hypothyroidism [Recovered/Resolved]
  - Face oedema [Recovering/Resolving]
  - Hyperleukocytosis [Recovered/Resolved]
  - Status epilepticus [Recovering/Resolving]
  - Cholestasis [Recovered/Resolved]
  - Decreased appetite [Recovered/Resolved]
  - Lymphadenopathy [Recovering/Resolving]
  - Chest pain [Recovering/Resolving]
  - Tachycardia [Recovering/Resolving]
  - Pain [Recovered/Resolved]
  - Thrombosis [Recovering/Resolving]
  - Diarrhoea [Recovered/Resolved]
  - Pericardial effusion [Recovering/Resolving]
  - Dyspnoea [Recovering/Resolving]
  - Hypokalaemia [Recovered/Resolved]
  - Respiratory distress [Fatal]
  - Thrombocytopenia [Recovering/Resolving]
  - Pigmentation disorder [Recovering/Resolving]
  - Hypocalcaemia [Recovered/Resolved]
  - Weight decreased [Recovering/Resolving]
  - Diarrhoea [Recovered/Resolved]
  - Hyperleukocytosis [Recovering/Resolving]
  - Lymphadenopathy [Recovering/Resolving]
  - Flank pain [Recovering/Resolving]
  - Dysgeusia [Recovered/Resolved]
  - Dysgeusia [Recovering/Resolving]
  - Palmar-plantar erythrodysaesthesia syndrome [Recovered/Resolved]
  - Spinal compression fracture [Recovering/Resolving]
  - Hypoalbuminaemia [Recovered/Resolved]
  - Hepatocellular injury [Recovered/Resolved]
  - Diarrhoea [Recovering/Resolving]
  - Stomatitis [Recovered/Resolved]
  - Stomatitis [Recovering/Resolving]
  - Vomiting [Recovering/Resolving]
  - Angular cheilitis [Recovered/Resolved]
  - Dry skin [Recovered/Resolved]
  - Nausea [Recovering/Resolving]
  - Computerised tomogram abnormal [Recovering/Resolving]

NARRATIVE: CASE EVENT DATE: 201903
